FAERS Safety Report 8104541-5 (Version None)
Quarter: 2012Q1

REPORT INFORMATION
  Report Type: 
  Country: None (occurrence: None)
  Receive Date: 20120201
  Receipt Date: 20120130
  Transmission Date: 20120608
  Serious: Yes (Hospitalization, Disabling)
  Sender: FDA-Public Use
  Company Number: US-MERCK-1105USA03755

PATIENT
  Age: 55 Year
  Sex: Female

DRUGS (9)
  1. FOSAMAX [Suspect]
     Route: 048
     Dates: start: 20070306
  2. FOSAMAX [Suspect]
     Indication: OSTEOPOROSIS
     Route: 048
     Dates: start: 20040101, end: 20051101
  3. METHOTREXATE [Concomitant]
     Route: 065
     Dates: start: 20050101
  4. PREDNISONE [Concomitant]
     Route: 065
     Dates: start: 20050101, end: 20100101
  5. FOSAMAX PLUS D [Suspect]
     Indication: OSTEOPOROSIS
     Route: 048
     Dates: start: 20051230, end: 20091001
  6. FOLIC ACID [Concomitant]
     Route: 065
     Dates: start: 20050101
  7. ENBREL [Concomitant]
     Route: 065
     Dates: start: 20050101
  8. CALCIUM (UNSPECIFIED) AND VITAMIN D (UNSPECIFIED) [Concomitant]
     Route: 065
  9. FOSAMAX [Suspect]
     Route: 048
     Dates: start: 20110705, end: 20110901

REACTIONS (11)
  - ARTHRITIS [None]
  - CARPAL TUNNEL SYNDROME [None]
  - FALL [None]
  - HYPERTENSION [None]
  - ARTHROPATHY [None]
  - SPLEEN DISORDER [None]
  - IMPAIRED HEALING [None]
  - FRACTURE NONUNION [None]
  - FEMUR FRACTURE [None]
  - HIP FRACTURE [None]
  - ADVERSE EVENT [None]
